FAERS Safety Report 26186127 (Version 1)
Quarter: 2025Q4

REPORT INFORMATION
  Report Type: Spontaneous
  Country: US (occurrence: None)
  Receive Date: 20251219
  Receipt Date: 20251219
  Transmission Date: 20260118
  Serious: Yes (Hospitalization)
  Sender: FDA-CTU
  Company Number: None

PATIENT
  Sex: Female

DRUGS (11)
  1. XOLAIR [Suspect]
     Active Substance: OMALIZUMAB
     Indication: Asthma
     Dosage: INJECT 2 SYRINGES UNDER THE SKIN (SUBCUTANEOUS INJECTION) EVERY FOUR WEEKS
     Route: 058
     Dates: start: 20250506
  2. ACYCLOVIR [Concomitant]
     Active Substance: ACYCLOVIR
  3. AZELASTINE SPR 0.1% [Concomitant]
  4. COREG CR [Concomitant]
     Active Substance: CARVEDILOL PHOSPHATE
  5. DONNATAL [Concomitant]
     Active Substance: ATROPINE SULFATE\HYOSCYAMINE SULFATE\PHENOBARBITAL\SCOPOLAMINE HYDROBROMIDE
  6. HYALURONIC ACID [Concomitant]
     Active Substance: HYALURONIC ACID
  7. EPIPEN [Concomitant]
     Active Substance: EPINEPHRINE
  8. LEXISCAN [Concomitant]
     Active Substance: REGADENOSON
  9. LIDOCAINE [Concomitant]
     Active Substance: LIDOCAINE
  10. MONTELUKAST SODIUM [Concomitant]
     Active Substance: MONTELUKAST SODIUM
  11. PRAVASTATIN SODIUM [Concomitant]
     Active Substance: PRAVASTATIN SODIUM

REACTIONS (2)
  - Nephrolithiasis [None]
  - Therapy interrupted [None]
